FAERS Safety Report 21376146 (Version 2)
Quarter: 2022Q3

REPORT INFORMATION
  Report Type: Spontaneous
  Country: IE (occurrence: IE)
  Receive Date: 20220926
  Receipt Date: 20220926
  Transmission Date: 20221026
  Serious: Yes (Other)
  Sender: FDA-Public Use
  Company Number: IE-PFIZER INC-PV202200062214

PATIENT
  Age: 76 Year
  Sex: Male

DRUGS (7)
  1. DAPTOMYCIN [Suspect]
     Active Substance: DAPTOMYCIN
     Indication: Rectal abscess
     Dosage: 600 MG, 1X/DAY
     Route: 042
  2. CEFUROXIME [Suspect]
     Active Substance: CEFUROXIME
     Indication: Rectal abscess
     Dosage: 750 MG, 3X/DAY
     Route: 042
  3. CEFUROXIME [Suspect]
     Active Substance: CEFUROXIME
     Dosage: 1.5 MG, 3X/DAY
     Route: 042
  4. METRONIDAZOLE [Suspect]
     Active Substance: METRONIDAZOLE
     Indication: Rectal abscess
     Dosage: 400 MG, 3X/DAY
     Route: 048
  5. ASPIRIN [Concomitant]
     Active Substance: ASPIRIN
     Dosage: 75 MG
  6. FINASTERIDE [Concomitant]
     Active Substance: FINASTERIDE
     Dosage: 5 MG
  7. LANSOPRAZOLE [Concomitant]
     Active Substance: LANSOPRAZOLE
     Dosage: 30 MG

REACTIONS (1)
  - Toxic encephalopathy [Recovering/Resolving]
